FAERS Safety Report 4504197-4 (Version None)
Quarter: 2004Q4

REPORT INFORMATION
  Report Type: 
  Country: None (occurrence: None)
  Receive Date: 20041116
  Receipt Date: 20041116
  Transmission Date: 20050328
  Serious: Yes (Life-Threatening)
  Sender: FDA-Public Use
  Company Number: None

PATIENT
  Sex: Male
  Weight: 38 kg

DRUGS (4)
  1. METHOTREXATE [Suspect]
     Indication: ACUTE LYMPHOCYTIC LEUKAEMIA
     Dosage: 1 GM/M2 IV X 1 OVER 24 HRS
     Route: 042
     Dates: start: 20040706, end: 20040707
  2. LEUCOVORIN [Concomitant]
  3. 6MP [Concomitant]
  4. VINCRISTINE [Concomitant]

REACTIONS (2)
  - ELECTROENCEPHALOGRAM ABNORMAL [None]
  - GRAND MAL CONVULSION [None]
